FAERS Safety Report 5117719-X (Version None)
Quarter: 2006Q3

REPORT INFORMATION
  Report Type: 
  Country: None (occurrence: None)
  Receive Date: 20060926
  Receipt Date: 20060907
  Transmission Date: 20061208
  Serious: Yes (Hospitalization)
  Sender: FDA-Public Use
  Company Number: FR200609001296

PATIENT
  Age: 62 Year
  Sex: Male
  Weight: 70 kg

DRUGS (2)
  1. GEMZAR [Suspect]
     Indication: BREAST CANCER
     Dosage: 2410 MG, OTHER, INTRAVENOUS
     Route: 042
     Dates: start: 20050914, end: 20051208
  2. TAXOL (PACITAXEL) [Concomitant]

REACTIONS (2)
  - ALCOHOL POISONING [None]
  - PERIPHERAL SENSORY NEUROPATHY [None]
